FAERS Safety Report 26095588 (Version 1)
Quarter: 2025Q4

REPORT INFORMATION
  Report Type: Spontaneous
  Country: EU (occurrence: EU)
  Receive Date: 20251127
  Receipt Date: 20251127
  Transmission Date: 20260119
  Serious: Yes (Other)
  Sender: MERCK SHARP & DOHME LLC
  Company Number: None

PATIENT
  Age: 15 Month
  Sex: Female
  Weight: 16 kg

DRUGS (5)
  1. M-M-RVAXPRO [Suspect]
     Active Substance: MEASLES VIRUS STRAIN ENDERS^ ATTENUATED EDMONSTON LIVE ANTIGEN\MUMPS VIRUS STRAIN B LEVEL JERYL LYNN
     Indication: Immunisation
     Dates: start: 20240725, end: 20240725
  2. ADALIMUMAB [Concomitant]
     Active Substance: ADALIMUMAB
     Dosage: INJECTION SOLUTION, 100 MG/ML (MILLIGRAMS PER MILLILITER)
  3. METHOTREXATE INJECTION VIAL 100MG/ML / Brand name not specified [Concomitant]
     Dosage: INJECTION SOLUTION, 100 MG/ML (MILLIGRAMS PER MILLILITER)
  4. PREDNISOLONE ORAL SOLUTION 1MG/ML / Brand name not specified [Concomitant]
     Dosage: ORAL SOLUTION, 1 MG/ML (MILLIGRAM PER MILLILITER)
     Route: 048
  5. STERILE DILUENT (WATER) [Suspect]
     Active Substance: WATER
     Indication: Immunisation
     Dosage: SOLVENT 0.5ML
     Dates: start: 20240725, end: 20240725

REACTIONS (1)
  - Juvenile idiopathic arthritis [Not Recovered/Not Resolved]
